FAERS Safety Report 19166728 (Version 1)
Quarter: 2021Q2

REPORT INFORMATION
  Report Type: Spontaneous
  Country: US (occurrence: US)
  Receive Date: 20210421
  Receipt Date: 20210421
  Transmission Date: 20210717
  Serious: No
  Sender: FDA-Public Use
  Company Number: US-FRESENIUS MEDICAL CARE RENAL THERAPIES GROUP-FMC-2104-000458

PATIENT
  Age: 76 Year
  Sex: Female
  Weight: 94.5 kg

DRUGS (2)
  1. DELFLEX WITH DEXTROSE 2.5% LOW MAGNESIUM LOW CALCIUM [Suspect]
     Active Substance: CALCIUM CHLORIDE\DEXTROSE\MAGNESIUM CHLORIDE\SODIUM CHLORIDE\SODIUM LACTATE
     Indication: END STAGE RENAL DISEASE
     Dosage: FIRST EXCHANGE OF 1800 ML, SECOND AND THIRD EXCHANGE OF 1700 ML, A FOURTH EXCHANGE OF 1800 ML, A LAS
     Route: 033
     Dates: start: 20201113
  2. DELFLEX WITH DEXTROSE 1.5% LOW MAGNESIUM LOW CALCIUM [Suspect]
     Active Substance: CALCIUM CHLORIDE\DEXTROSE\MAGNESIUM CHLORIDE\SODIUM CHLORIDE\SODIUM LACTATE
     Indication: END STAGE RENAL DISEASE
     Dosage: FIRST EXCHANGE OF 1800 ML, SECOND AND THIRD EXCHANGE OF 1700 ML, A FOURTH EXCHANGE OF 1800 ML, A LAS
     Route: 033
     Dates: start: 20201113

REACTIONS (2)
  - Abdominal pain [Not Recovered/Not Resolved]
  - Malaise [Unknown]
